FAERS Safety Report 13735596 (Version 1)
Quarter: 2017Q3

REPORT INFORMATION
  Report Type: Spontaneous
  Country: US (occurrence: US)
  Receive Date: 20170708
  Receipt Date: 20170708
  Transmission Date: 20171127
  Serious: Yes (Other)
  Sender: FDA-Public Use
  Company Number: None

PATIENT
  Age: 69 Year
  Sex: Female
  Weight: 139 kg

DRUGS (11)
  1. LANTUS [Concomitant]
     Active Substance: INSULIN GLARGINE
  2. METFORMIN [Concomitant]
     Active Substance: METFORMIN HYDROCHLORIDE
  3. LISINIPRIL [Concomitant]
     Active Substance: LISINOPRIL
  4. VITAMIN C [Concomitant]
     Active Substance: ASCORBIC ACID
  5. INVOKANA [Suspect]
     Active Substance: CANAGLIFLOZIN
     Indication: TYPE 2 DIABETES MELLITUS
     Dosage: ?          OTHER STRENGTH:MG;QUANTITY:1 TABLET(S);?
     Route: 048
     Dates: start: 20170321, end: 20170623
  6. VITAMIN D [Concomitant]
     Active Substance: CHOLECALCIFEROL
  7. BABY ASPIRIN [Concomitant]
     Active Substance: ASPIRIN
  8. VITAMIN B [Concomitant]
     Active Substance: VITAMIN B
  9. GLUCOSAMINE [Concomitant]
     Active Substance: GLUCOSAMINE
  10. LASIX [Concomitant]
     Active Substance: FUROSEMIDE
  11. PLANT STEROLS [Concomitant]

REACTIONS (5)
  - Pruritus generalised [None]
  - Jaundice [None]
  - Fatigue [None]
  - Chromaturia [None]
  - Renal failure [None]

NARRATIVE: CASE EVENT DATE: 20170609
